FAERS Safety Report 7234429-3 (Version None)
Quarter: 2011Q1

REPORT INFORMATION
  Report Type: 
  Country: None (occurrence: None)
  Receive Date: 20110119
  Receipt Date: 20110112
  Transmission Date: 20110831
  Serious: Yes (Hospitalization, Other)
  Sender: FDA-Public Use
  Company Number: US-AMGEN-USASP2011002180

PATIENT

DRUGS (5)
  1. ADVIL LIQUI-GELS [Concomitant]
     Dosage: UNK UNK, PRN
     Dates: end: 20080101
  2. ENBREL [Suspect]
     Indication: PSORIATIC ARTHROPATHY
     Dosage: 50 MG, QWK
     Route: 058
     Dates: start: 20070401
  3. ENBREL [Suspect]
     Indication: PSORIASIS
     Dosage: 50 MG, 2 TIMES/WK
     Route: 058
     Dates: start: 20070101, end: 20070401
  4. PRENATAL VITAMINS                  /01549301/ [Concomitant]
     Indication: PREGNANCY
     Route: 048
  5. ENBREL [Suspect]
     Indication: RHEUMATOID ARTHRITIS

REACTIONS (9)
  - GESTATIONAL DIABETES [None]
  - RHEUMATOID ARTHRITIS [None]
  - VENOUS THROMBOSIS IN PREGNANCY [None]
  - ANAESTHETIC COMPLICATION [None]
  - PSORIASIS [None]
  - EXOSTOSIS [None]
  - PROCEDURAL VOMITING [None]
  - PSORIATIC ARTHROPATHY [None]
  - POST LUMBAR PUNCTURE SYNDROME [None]
